FAERS Safety Report 5336449-2 (Version None)
Quarter: 2007Q2

REPORT INFORMATION
  Report Type: 
  Country: None (occurrence: None)
  Receive Date: 20070523
  Receipt Date: 20070507
  Transmission Date: 20071010
  Serious: Yes (Death, Other)
  Sender: FDA-Public Use
  Company Number: 2007JP001979

PATIENT
  Sex: Female

DRUGS (1)
  1. PROGRAF [Suspect]

REACTIONS (1)
  - ATRIAL FLUTTER [None]
